FAERS Safety Report 9411085 (Version 2)
Quarter: 2013Q3

REPORT INFORMATION
  Report Type: Report from Study
  Country: BR (occurrence: BR)
  Receive Date: 20130720
  Receipt Date: 20130812
  Transmission Date: 20140515
  Serious: Yes (Other)
  Sender: FDA-Public Use
  Company Number: BR-US-EMD SERONO, INC.-7224215

PATIENT
  Age: 35 Year
  Sex: Female

DRUGS (3)
  1. REBIF [Suspect]
     Indication: RELAPSING-REMITTING MULTIPLE SCLEROSIS
     Dates: start: 20100113
  2. DROSPIRENONE W/ETHINYLESTRADIOL [Suspect]
     Indication: CONTRACEPTION
  3. SERTRALINE [Concomitant]
     Indication: ANTIDEPRESSANT THERAPY
     Dosage: 1 AND A HALF TABLET

REACTIONS (3)
  - Abortion spontaneous [Recovered/Resolved]
  - Nausea [Unknown]
  - Maternal exposure during pregnancy [Recovered/Resolved]
